FAERS Safety Report 6029585-9 (Version None)
Quarter: 2009Q1

REPORT INFORMATION
  Report Type: 
  Country: None (occurrence: None)
  Receive Date: 20090107
  Receipt Date: 20090105
  Transmission Date: 20090719
  Serious: Yes (Death)
  Sender: FDA-Public Use
  Company Number: CN-ASTRAZENECA-2009AP00061

PATIENT
  Age: 62 Year
  Sex: Female

DRUGS (6)
  1. SEROQUEL [Suspect]
     Indication: MANIA
     Route: 048
     Dates: start: 20081201
  2. SEROQUEL [Suspect]
     Route: 048
     Dates: start: 20081202
  3. SEROQUEL [Suspect]
     Route: 048
     Dates: start: 20081203, end: 20081204
  4. SEROQUEL [Suspect]
     Route: 048
     Dates: start: 20081205, end: 20081208
  5. MAGNESIUM VALPROATE [Suspect]
  6. LITHIUM CARBONATE [Suspect]
     Dates: start: 20081201

REACTIONS (1)
  - SUDDEN DEATH [None]
